FAERS Safety Report 8840199 (Version 1)
Quarter: 2012Q4

REPORT INFORMATION
  Report Type: 
  Country: US (occurrence: US)
  Receive Date: 20121015
  Receipt Date: 20121015
  Transmission Date: 20130627
  Serious: No
  Sender: FDA-Public Use
  Company Number: US-VERTEX PHARMACEUTICAL INC.-2012-022533

PATIENT
  Sex: Female

DRUGS (4)
  1. VX-950 [Suspect]
     Indication: HEPATITIS C
     Dosage: 750 mg, tid
     Route: 048
     Dates: start: 20120718
  2. RIBASPHERE [Suspect]
     Indication: HEPATITIS C
     Dosage: UNK
     Route: 048
     Dates: start: 20120718
  3. PEGASYS [Suspect]
     Indication: HEPATITIS C
     Dosage: 180 ?g, qw
     Route: 058
     Dates: start: 20120718
  4. PROCRIT                            /00909301/ [Concomitant]
     Indication: ANAEMIA
     Dosage: 40000 N/A, qw
     Route: 058
     Dates: start: 20120907

REACTIONS (3)
  - Rash [Unknown]
  - Pruritus [Unknown]
  - Dysgeusia [Unknown]
